FAERS Safety Report 12875606 (Version 1)
Quarter: 2016Q4

REPORT INFORMATION
  Report Type: Spontaneous
  Country: US (occurrence: US)
  Receive Date: 20161024
  Receipt Date: 20161024
  Transmission Date: 20170207
  Serious: No
  Sender: FDA-Public Use
  Company Number: US-BAYER-2016-201935

PATIENT
  Age: 82 Year
  Sex: Male
  Weight: 77.98 kg

DRUGS (15)
  1. PHILLIPS^ LAXATIVE DIETARY SUPPLEMENT [Suspect]
     Active Substance: MAGNESIUM OXIDE
     Indication: GASTROINTESTINAL DISORDER
     Dosage: UNK
     Route: 048
  2. BAYER FAST RELEASE [Concomitant]
     Active Substance: ASPIRIN
     Dosage: 1 DF, QD
     Route: 048
  3. RAMIPRIL. [Concomitant]
     Active Substance: RAMIPRIL
  4. MIRALAX [Suspect]
     Active Substance: POLYETHYLENE GLYCOL 3350
  5. MAGNESIUM OXIDE. [Concomitant]
     Active Substance: MAGNESIUM OXIDE
  6. LASIX [Concomitant]
     Active Substance: FUROSEMIDE
  7. SODIUM BICARBONATE. [Concomitant]
     Active Substance: SODIUM BICARBONATE
     Dosage: UNK
  8. PROPRANOLOL [Concomitant]
     Active Substance: PROPRANOLOL\PROPRANOLOL HYDROCHLORIDE
  9. VITAMIN D3 [Concomitant]
     Active Substance: CHOLECALCIFEROL
  10. GABAPENTIN. [Concomitant]
     Active Substance: GABAPENTIN
  11. AVODART [Concomitant]
     Active Substance: DUTASTERIDE
  12. TRAMADOL. [Concomitant]
     Active Substance: TRAMADOL
  13. PANTOPRAZOLE [Concomitant]
     Active Substance: PANTOPRAZOLE SODIUM
  14. XANAX [Concomitant]
     Active Substance: ALPRAZOLAM
  15. CELEBREX [Concomitant]
     Active Substance: CELECOXIB

REACTIONS (3)
  - Product use issue [Unknown]
  - Drug ineffective [None]
  - Rash [Not Recovered/Not Resolved]
